FAERS Safety Report 8711817 (Version 2)
Quarter: 2012Q4

REPORT INFORMATION
  Report Type: 
  Country: AU (occurrence: AU)
  Receive Date: 20120807
  Receipt Date: 20121001
  Transmission Date: 20130627
  Serious: Yes (Hospitalization, Other)
  Sender: FDA-Public Use
  Company Number: AU-B.I. PHARMACEUTICALS,INC./RIDGEFIELD-2012-AU-01327AU

PATIENT
  Age: 77 Year
  Sex: Male
  Weight: 94 kg

DRUGS (5)
  1. PRADAXA [Suspect]
     Indication: ATRIAL FIBRILLATION
     Dosage: 220 mg
     Dates: start: 20110819
  2. RAMIPRIL [Concomitant]
     Dosage: 5 mg
  3. DIGOXIN [Concomitant]
     Dosage: 62.5 mcg
  4. LIPITOR [Concomitant]
     Dosage: 80 mcg
  5. PREDNISONE [Concomitant]
     Dosage: 5 mg

REACTIONS (4)
  - Transient ischaemic attack [Recovered/Resolved]
  - Carotid artery stenosis [Unknown]
  - Dysarthria [Recovered/Resolved]
  - Dysphagia [Recovered/Resolved]
